FAERS Safety Report 8600558-2 (Version None)
Quarter: 2012Q3

REPORT INFORMATION
  Report Type: 
  Country: None (occurrence: None)
  Receive Date: 20120817
  Receipt Date: 20120809
  Transmission Date: 20120928
  Serious: Yes (Hospitalization)
  Sender: FDA-Public Use
  Company Number: US-BAYER-2012-082386

PATIENT
  Age: 32 Year
  Sex: Female
  Weight: 81.633 kg

DRUGS (11)
  1. HYDROCODONE BITARTRATE AND ACETAMINOPHEN [Concomitant]
     Dosage: 10/650 TAB
     Dates: start: 20070312, end: 20070513
  2. LYRICA [Concomitant]
     Dosage: 75 MG, UNK
     Dates: start: 20070419
  3. PREMARIN [Concomitant]
     Dosage: 1.25 MG, UNK
     Dates: start: 20070425
  4. DETROL [Concomitant]
     Dosage: 2 MG, UNK
     Dates: start: 20070419, end: 20070715
  5. PROMETHAZINE [Concomitant]
     Dosage: 25 MG
     Dates: start: 20070304, end: 20070729
  6. METHADONE HYDROCHLORIDE [Concomitant]
     Dosage: 10 MG, UNK
     Dates: start: 20070331, end: 20070606
  7. METFORMIN HCL [Concomitant]
     Dosage: 500 MG, UNK
     Dates: start: 20070327, end: 20070616
  8. LORAZEPAM [Concomitant]
     Dosage: 1 MG, UNK
     Dates: start: 20070419, end: 20070513
  9. KETOROLAC [Concomitant]
     Dosage: 10 MG, UNK
     Dates: start: 20070513
  10. YASMIN [Suspect]
  11. TIZANIDINE [Concomitant]
     Dosage: 2 MG, UNK
     Dates: start: 20070429

REACTIONS (2)
  - PULMONARY EMBOLISM [None]
  - DEEP VEIN THROMBOSIS [None]
